FAERS Safety Report 17614819 (Version 1)
Quarter: 2020Q2

REPORT INFORMATION
  Report Type: Spontaneous
  Country: US (occurrence: US)
  Receive Date: 20200402
  Receipt Date: 20200402
  Transmission Date: 20200713
  Serious: No
  Sender: FDA-Public Use
  Company Number: US-BAYER-2020-054470

PATIENT
  Age: 84 Year
  Sex: Female

DRUGS (3)
  1. LISINOPRIL. [Concomitant]
     Active Substance: LISINOPRIL
  2. MIRALAX [Suspect]
     Active Substance: POLYETHYLENE GLYCOL 3350
     Indication: GASTROINTESTINAL DISORDER
     Dosage: 17G DOSE
     Route: 048
     Dates: start: 201909
  3. CLEARLAX [SENNOSIDE A+B] [Concomitant]

REACTIONS (2)
  - Diarrhoea [Unknown]
  - Expired product administered [Unknown]

NARRATIVE: CASE EVENT DATE: 202003
